FAERS Safety Report 19598161 (Version 1)
Quarter: 2021Q3

REPORT INFORMATION
  Report Type: Spontaneous
  Country: FR (occurrence: FR)
  Receive Date: 20210722
  Receipt Date: 20210722
  Transmission Date: 20211014
  Serious: Yes (Life-Threatening, Other)
  Sender: FDA-Public Use
  Company Number: FR-MYLANLABS-2021M1044953

PATIENT
  Age: 30 Year
  Sex: Male

DRUGS (14)
  1. LORAZEPAM. [Concomitant]
     Active Substance: LORAZEPAM
     Dosage: 2.5 MILLIGRAM, QD
     Route: 048
     Dates: start: 20201209
  2. PIPERACILLIN SODIUM [Suspect]
     Active Substance: PIPERACILLIN SODIUM
     Indication: ANTIBIOTIC THERAPY
     Dosage: UNKNOWN
     Route: 042
     Dates: start: 20201216, end: 20210107
  3. POVIDONE [Concomitant]
     Active Substance: POVIDONE
     Dosage: 6 DROPS / DAY
     Route: 047
     Dates: start: 20201211
  4. TRIMEBUTINE [Concomitant]
     Active Substance: TRIMEBUTINE
     Dosage: UNKNOWN
     Route: 042
  5. CARMELLOSE [Concomitant]
     Active Substance: CARBOXYMETHYLCELLULOSE
     Dosage: 6 DROPS / DAY
     Route: 047
     Dates: start: 20201211
  6. ENOXAPARINE SODIQUE [Concomitant]
     Active Substance: ENOXAPARIN SODIUM
     Dosage: 4000 INTERNATIONAL UNIT, QD
     Route: 042
     Dates: start: 20201217
  7. RETINOL [Concomitant]
     Active Substance: RETINOL
     Dosage: 3 APPLICATIONS/J
     Route: 047
     Dates: start: 20201211
  8. PANTOPRAZOLE MYLAN [Suspect]
     Active Substance: PANTOPRAZOLE SODIUM
     Indication: OESOPHAGITIS
     Dosage: 40 MILLIGRAM
     Route: 042
     Dates: start: 202012, end: 20210107
  9. CLINDAMYCINE                       /00166001/ [Suspect]
     Active Substance: CLINDAMYCIN
     Indication: ANTIBIOTIC THERAPY
     Dosage: UNKNOWN
     Route: 042
     Dates: start: 20201216, end: 20210107
  10. ONDANSETRON [Concomitant]
     Active Substance: ONDANSETRON
     Dosage: 12 MILLIGRAM
     Route: 042
     Dates: start: 20201208
  11. TAZOBACTAM [Suspect]
     Active Substance: TAZOBACTAM
     Indication: ANTIBIOTIC THERAPY
     Dosage: UNKNOWN
     Route: 042
     Dates: start: 20201216, end: 20210107
  12. NEFOPAM [Concomitant]
     Active Substance: NEFOPAM
     Dosage: 80 MILLIGRAM
     Route: 042
  13. PARACETAMOL [Concomitant]
     Active Substance: ACETAMINOPHEN
     Dosage: 4 GRAM
     Route: 042
     Dates: start: 202012
  14. ZOPICLONE [Concomitant]
     Active Substance: ZOPICLONE
     Dosage: 7.5 MILLIGRAM, QD
     Route: 048
     Dates: start: 20201208

REACTIONS (2)
  - Agranulocytosis [Recovered/Resolved]
  - Coronavirus infection [Not Recovered/Not Resolved]

NARRATIVE: CASE EVENT DATE: 20210104
